FAERS Safety Report 4995485-6 (Version None)
Quarter: 2006Q2

REPORT INFORMATION
  Report Type: 
  Country: None (occurrence: None)
  Receive Date: 20060504
  Receipt Date: 20060426
  Transmission Date: 20061013
  Serious: Yes (Hospitalization, Other)
  Sender: FDA-Public Use
  Company Number: CHPA2006US04273

PATIENT
  Age: 84 Year
  Sex: Female
  Weight: 59.9 kg

DRUGS (1)
  1. EXCEDRIN EXTRA STRENGTH (NCH) (CAFFEINE CITRATE, ACETYLSALICYLIC ACID, [Suspect]
     Indication: BACK PAIN
     Dosage: SEE IMAGE
     Route: 048

REACTIONS (6)
  - DIARRHOEA [None]
  - DRUG ABUSER [None]
  - FAECES DISCOLOURED [None]
  - HEADACHE [None]
  - INCORRECT DOSE ADMINISTERED [None]
  - ULCER HAEMORRHAGE [None]
